FAERS Safety Report 5753269-5 (Version None)
Quarter: 2008Q2

REPORT INFORMATION
  Report Type: 
  Country: None (occurrence: None)
  Receive Date: 20080530
  Receipt Date: 20071023
  Transmission Date: 20081010
  Serious: No
  Sender: FDA-Public Use
  Company Number: A0688003A

PATIENT
  Age: 71 Year
  Sex: Female

DRUGS (2)
  1. VENTOLIN HFA [Suspect]
     Indication: PNEUMONITIS
     Dosage: 2PUFF AS REQUIRED
     Route: 055
     Dates: start: 20071014
  2. NO CONCURRENT MEDICATION [Concomitant]

REACTIONS (1)
  - GLOSSODYNIA [None]
